FAERS Safety Report 9514286 (Version 4)
Quarter: 2014Q2

REPORT INFORMATION
  Report Type: Report from Study
  Country: US (occurrence: US)
  Receive Date: 20130910
  Receipt Date: 20140603
  Transmission Date: 20141212
  Serious: Yes (Hospitalization)
  Sender: FDA-Public Use
  Company Number: US-SANOFI-AVENTIS-2013SA089285

PATIENT
  Age: 63 Year
  Sex: Female
  Weight: 76 kg

DRUGS (12)
  1. AUBAGIO [Suspect]
     Indication: MULTIPLE SCLEROSIS
     Route: 048
     Dates: start: 20130611
  2. AUBAGIO [Suspect]
     Indication: MULTIPLE SCLEROSIS
     Route: 048
  3. BUTORPHANOL [Concomitant]
     Dosage: 10MG/ML 1 SPRAY EVERY 8HRS
  4. CYCLOBENZAPRINE [Concomitant]
     Route: 065
  5. HYDROCODONE [Concomitant]
     Dosage: 7.5-500 MG 3 TIMES A DAY.
  6. NEXIUM [Concomitant]
     Route: 065
  7. MODAFINIL [Concomitant]
     Route: 065
  8. HYDROCHLOROTHIAZIDE/SPIRONOLACTONE [Concomitant]
     Dosage: 25-25 MG
  9. TIZANIDINE [Concomitant]
  10. TRAZODONE [Concomitant]
  11. ALL OTHER THERAPEUTIC PRODUCTS [Concomitant]
  12. STOOL SOFTENER [Concomitant]
     Dosage: 2-4 TABLET.

REACTIONS (6)
  - Sinus disorder [Unknown]
  - Muscular weakness [Unknown]
  - Paraesthesia [Recovered/Resolved]
  - Burning sensation [Recovered/Resolved]
  - Alopecia [Unknown]
  - Drug dose omission [Unknown]
